FAERS Safety Report 12291132 (Version 2)
Quarter: 2016Q2

REPORT INFORMATION
  Report Type: Spontaneous
  Country: US (occurrence: US)
  Receive Date: 20160421
  Receipt Date: 20160505
  Transmission Date: 20160815
  Serious: Yes (Other)
  Sender: FDA-Public Use
  Company Number: US-PFIZER INC-2016219239

PATIENT
  Age: 48 Year
  Sex: Male

DRUGS (1)
  1. LYRICA [Suspect]
     Active Substance: PREGABALIN
     Indication: DIABETIC NEUROPATHY
     Dosage: 150 MG, UNK (3 TIMES DAILY/2 TIMES DAILY)
     Dates: start: 201509, end: 201601

REACTIONS (5)
  - Abasia [Unknown]
  - Pain [Unknown]
  - Pain in extremity [Unknown]
  - Dizziness [Unknown]
  - Condition aggravated [Unknown]
